FAERS Safety Report 12355204 (Version 1)
Quarter: 2016Q2

REPORT INFORMATION
  Report Type: Spontaneous
  Country: US (occurrence: None)
  Receive Date: 20160510
  Receipt Date: 20160510
  Transmission Date: 20160815
  Serious: No
  Sender: FDA-Public Use
  Company Number: None

PATIENT
  Age: 69 Year
  Sex: Female

DRUGS (1)
  1. FENTANYL TRANSDERMAL SYSTEM [Suspect]
     Active Substance: FENTANYL
     Indication: PAIN
     Dosage: 50 UG Q72HR. TRANSDERMAL
     Route: 062
     Dates: start: 2013

REACTIONS (3)
  - Product adhesion issue [None]
  - Wrong technique in product usage process [None]
  - Hyperhidrosis [None]

NARRATIVE: CASE EVENT DATE: 20160427
